FAERS Safety Report 4381891-X (Version None)
Quarter: 2004Q2

REPORT INFORMATION
  Report Type: 
  Country: None (occurrence: None)
  Receive Date: 20040615
  Receipt Date: 20040602
  Transmission Date: 20050107
  Serious: Yes (Life-Threatening)
  Sender: FDA-Public Use
  Company Number: 04P-056-0261498-00

PATIENT
  Age: 43 Year
  Sex: Female
  Weight: 57 kg

DRUGS (5)
  1. HUMIRA [Suspect]
     Dosage: 40 MG, 2 IN 1 WK, SUBCUTANEOUS
     Route: 058
     Dates: start: 20040129
  2. OMEPRAZOLE [Concomitant]
  3. FOLIC ACID [Concomitant]
  4. NIMESULIDE [Concomitant]
  5. METHOTREXATE [Concomitant]

REACTIONS (1)
  - ANGIONEUROTIC OEDEMA [None]
